FAERS Safety Report 8045272-X (Version None)
Quarter: 2012Q1

REPORT INFORMATION
  Report Type: 
  Country: None (occurrence: None)
  Receive Date: 20120113
  Receipt Date: 20120109
  Transmission Date: 20120608
  Serious: Yes (Other)
  Sender: FDA-Public Use
  Company Number: US-PFIZER INC-2012006556

PATIENT
  Sex: Male

DRUGS (3)
  1. VIAGRA [Suspect]
     Indication: ERECTILE DYSFUNCTION
     Dosage: 50 MG, AS NEEDED
     Route: 048
  2. NORVASC [Concomitant]
     Indication: HYPERTENSION
     Dosage: 10 MG, DAILY
  3. AMLODIPINE BESYLATE [Suspect]
     Indication: HYPERTENSION
     Dosage: DAILY
     Dates: start: 20110101, end: 20110101

REACTIONS (7)
  - DRUG INEFFECTIVE [None]
  - HYPERTENSION [None]
  - DYSPNOEA [None]
  - INSOMNIA [None]
  - CYANOPSIA [None]
  - CHEST PAIN [None]
  - PAIN IN EXTREMITY [None]
